FAERS Safety Report 9344207 (Version 1)
Quarter: 2013Q2

REPORT INFORMATION
  Report Type: Spontaneous
  Country: US (occurrence: None)
  Receive Date: 20130610
  Receipt Date: 20130610
  Transmission Date: 20140414
  Serious: Yes (Other)
  Sender: FDA-Public Use
  Company Number: 2013-001780

PATIENT
  Sex: Female

DRUGS (1)
  1. ASACOL HD (MESALAZINE) MODIFIED-RELEASE TABLET, 800MG [Suspect]
     Indication: INTESTINAL OBSTRUCTION
     Route: 048
     Dates: start: 2010, end: 201210

REACTIONS (2)
  - Bladder cancer [None]
  - Intestinal obstruction [None]
